FAERS Safety Report 7424392-4 (Version None)
Quarter: 2011Q2

REPORT INFORMATION
  Report Type: 
  Country: None (occurrence: None)
  Receive Date: 20110419
  Receipt Date: 20110413
  Transmission Date: 20111010
  Serious: Yes (Other)
  Sender: FDA-Public Use
  Company Number: CN-PFIZER INC-2011081628

PATIENT
  Age: 80 Year
  Sex: Male

DRUGS (13)
  1. FUROSEMIDE [Concomitant]
     Dosage: UNK
  2. METFORMIN HYDROCHLORIDE [Concomitant]
     Dosage: UNK
     Dates: end: 20110406
  3. DIGOXIN [Concomitant]
     Dosage: UNK
  4. ISOSORBIDE MONONITRATE [Concomitant]
     Dosage: UNK
  5. DALTEPARIN [Concomitant]
     Dosage: UNK
  6. PLAVIX [Concomitant]
     Dosage: UNK
  7. ALPROSTADIL [Concomitant]
     Dosage: UNK
  8. ASPIRIN [Concomitant]
     Dosage: UNK
  9. LIPITOR [Suspect]
     Indication: HYPERLIPIDAEMIA
     Dosage: 20 MG, UNK
     Route: 048
     Dates: start: 20110403, end: 20110401
  10. ANTISTERONE [Concomitant]
     Dosage: UNK
  11. POTASSIUM CHLORIDE [Concomitant]
     Dosage: UNK
  12. GLUCOBAY [Concomitant]
     Dosage: UNK
  13. NOVOLIN R [Concomitant]
     Dosage: UNK

REACTIONS (7)
  - BLOOD CREATINE PHOSPHOKINASE INCREASED [None]
  - MUSCULAR WEAKNESS [None]
  - PULMONARY EMBOLISM [None]
  - LUNG INFECTION [None]
  - BLOOD CREATININE INCREASED [None]
  - BLOOD POTASSIUM INCREASED [None]
  - BLOOD CREATINE PHOSPHOKINASE MB INCREASED [None]
